FAERS Safety Report 20569072 (Version 1)
Quarter: 2022Q1

REPORT INFORMATION
  Report Type: Spontaneous
  Country: US (occurrence: None)
  Receive Date: 20220308
  Receipt Date: 20220308
  Transmission Date: 20220423
  Serious: No
  Sender: FDA-Public Use
  Company Number: US-ROCHE-3012716

PATIENT
  Age: 56 Year
  Sex: Male

DRUGS (1)
  1. ENSPRYNG [Suspect]
     Active Substance: SATRALIZUMAB-MWGE
     Indication: Product used for unknown indication
     Route: 058
     Dates: start: 202109

REACTIONS (2)
  - COVID-19 [Recovered/Resolved]
  - Lower respiratory tract infection [Unknown]

NARRATIVE: CASE EVENT DATE: 20220112
